FAERS Safety Report 5782977-5 (Version None)
Quarter: 2008Q2

REPORT INFORMATION
  Report Type: 
  Country: None (occurrence: None)
  Receive Date: 20080624
  Receipt Date: 20080610
  Transmission Date: 20081010
  Serious: Yes (Life-Threatening, Hospitalization)
  Sender: FDA-Public Use
  Company Number: FR-BAXTER-2008BH006128

PATIENT
  Age: 12 Year
  Sex: Female
  Weight: 70 kg

DRUGS (4)
  1. SUPRANE [Suspect]
     Indication: EMBOLISM
     Dosage: DOSE UNIT:UNKNOWN
     Route: 055
     Dates: start: 20080520, end: 20080520
  2. PROPOFOL [Concomitant]
     Indication: INDUCTION OF ANAESTHESIA
     Route: 042
     Dates: start: 20080520, end: 20080520
  3. SUFENTANIL CITRATE [Concomitant]
     Indication: INDUCTION OF ANAESTHESIA
     Route: 042
     Dates: start: 20080520, end: 20080520
  4. ATRACURIUM BESYLATE [Concomitant]
     Indication: INDUCTION OF ANAESTHESIA
     Route: 042
     Dates: start: 20080520, end: 20080520

REACTIONS (1)
  - HYPERTHERMIA MALIGNANT [None]
